FAERS Safety Report 12079357 (Version 1)
Quarter: 2016Q1

REPORT INFORMATION
  Report Type: Spontaneous
  Country: ZA (occurrence: ZA)
  Receive Date: 20160216
  Receipt Date: 20160216
  Transmission Date: 20160526
  Serious: Yes (Other)
  Sender: FDA-Public Use
  Company Number: ALCN2016ZA001126

PATIENT
  Age: 71 Year
  Sex: Male

DRUGS (1)
  1. VIGAMOX [Suspect]
     Active Substance: MOXIFLOXACIN HYDROCHLORIDE
     Indication: POSTOPERATIVE CARE
     Dosage: UNK
     Route: 047
     Dates: start: 20151125

REACTIONS (1)
  - Endophthalmitis [Unknown]

NARRATIVE: CASE EVENT DATE: 20151130
